FAERS Safety Report 8933219 (Version 1)
Quarter: 2012Q4

REPORT INFORMATION
  Report Type: Report from Study
  Country: JP (occurrence: JP)
  Receive Date: 20121128
  Receipt Date: 20121128
  Transmission Date: 20130627
  Serious: Yes (Hospitalization)
  Sender: FDA-Public Use
  Company Number: JP-VERTEX PHARMACEUTICAL INC.-AE-2012-008812

PATIENT
  Age: 67 Year
  Sex: Male

DRUGS (10)
  1. VX-950 (TELAPREVIR) [Suspect]
     Indication: CHRONIC HEPATITIS C
     Dosage: 2250 mg, qd
     Route: 048
     Dates: start: 20120405, end: 20120529
  2. REBETOL [Suspect]
     Indication: CHRONIC HEPATITIS C
     Dosage: 600 mg, qd
     Route: 048
     Dates: start: 20120405, end: 20120605
  3. PEGINTERFERON ALFA-2B [Concomitant]
     Dosage: 1.5 ?g/kg, qw
     Route: 058
     Dates: start: 20120405, end: 20120605
  4. PEGINTERFERON ALFA-2B [Concomitant]
     Dosage: UNK
  5. OMEPRAL [Concomitant]
     Dosage: 20 mg, qd
     Route: 048
     Dates: start: 20120417, end: 20120605
  6. GASMOTIN [Concomitant]
     Dosage: 15 mg, qd
     Route: 048
     Dates: start: 20120417, end: 20120605
  7. BISULASE                           /00154901/ [Concomitant]
     Dosage: 30 mg, qd
     Route: 048
     Dates: start: 20120417, end: 20120605
  8. PROMAC                             /00024401/ [Concomitant]
     Dosage: 150 mg, qd
     Route: 048
     Dates: start: 20120417, end: 20120605
  9. ZYLORIC [Concomitant]
     Dosage: 200 mg, qd
     Route: 048
     Dates: start: 20120508, end: 20120605
  10. CELESTAMINE                        /00252801/ [Concomitant]
     Dosage: 2 DF, qd
     Route: 048
     Dates: start: 20120522

REACTIONS (1)
  - Drug eruption [Recovered/Resolved]
